FAERS Safety Report 5297402-0 (Version None)
Quarter: 2007Q2

REPORT INFORMATION
  Report Type: 
  Country: None (occurrence: None)
  Receive Date: 20070409
  Receipt Date: 20070329
  Transmission Date: 20071010
  Serious: Yes (Hospitalization, Other)
  Sender: FDA-Public Use
  Company Number: 2007SP003066

PATIENT
  Age: 60 Year
  Sex: Female

DRUGS (8)
  1. TEMODAL [Suspect]
     Indication: GLIOBLASTOMA MULTIFORME
     Dosage: 150 MG/M2; QD; PO
     Route: 048
     Dates: start: 20070115, end: 20070119
  2. TEMODAL [Suspect]
     Indication: RECURRENT CANCER
     Dosage: 150 MG/M2; QD; PO
     Route: 048
     Dates: start: 20070115, end: 20070119
  3. RADIOTHERAPY (PREV.) [Concomitant]
  4. NIMUSTINE HYDROCHLORIDE (PREV.) [Concomitant]
  5. PROCARBAZINE (PREV.) [Concomitant]
  6. SELENICA-R (CON.) [Concomitant]
  7. TAKEPRON OD (CON.) [Concomitant]
  8. PURSENNID (CON.) [Concomitant]

REACTIONS (3)
  - DEPRESSED LEVEL OF CONSCIOUSNESS [None]
  - PLATELET COUNT DECREASED [None]
  - TUMOUR HAEMORRHAGE [None]
